FAERS Safety Report 15925205 (Version 1)
Quarter: 2019Q1

REPORT INFORMATION
  Report Type: Spontaneous
  Country: US (occurrence: US)
  Receive Date: 20190206
  Receipt Date: 20190206
  Transmission Date: 20190417
  Serious: No
  Sender: FDA-Public Use
  Company Number: US-PFIZER INC-2018274351

PATIENT
  Age: 16 Year
  Sex: Male

DRUGS (2)
  1. GENOTROPIN [Suspect]
     Active Substance: SOMATROPIN
     Dosage: 3.4 MG, DAILY
     Dates: start: 20160120
  2. GENOTROPIN [Suspect]
     Active Substance: SOMATROPIN
     Indication: EMPTY SELLA SYNDROME
     Dosage: 3.3 MG, UNK
     Dates: start: 201601

REACTIONS (9)
  - Blood sodium increased [Unknown]
  - Product use in unapproved indication [Unknown]
  - Blood bilirubin increased [Unknown]
  - Anion gap decreased [Unknown]
  - Blood creatinine decreased [Unknown]
  - Product prescribing error [Unknown]
  - Blood albumin decreased [Unknown]
  - Lymphocyte count increased [Unknown]
  - Carbon dioxide increased [Unknown]
